FAERS Safety Report 9060011 (Version 1)
Quarter: 2013Q1

REPORT INFORMATION
  Report Type: Spontaneous
  Country: US (occurrence: None)
  Receive Date: 20130207
  Receipt Date: 20130207
  Transmission Date: 20140127
  Serious: Yes (Disabling)
  Sender: FDA-Public Use
  Company Number: None

PATIENT
  Age: 25 None
  Sex: Female
  Weight: 90.72 kg

DRUGS (1)
  1. MYSOLINE [Suspect]
     Dosage: 250 MG 4X / 2008 2X
     Dates: start: 1963, end: 2013

REACTIONS (3)
  - Exposure during pregnancy [None]
  - Attention deficit/hyperactivity disorder [None]
  - Ill-defined disorder [None]
